FAERS Safety Report 5928016-4 (Version None)
Quarter: 2008Q4

REPORT INFORMATION
  Report Type: 
  Country: None (occurrence: None)
  Receive Date: 20081022
  Receipt Date: 20081022
  Transmission Date: 20090506
  Serious: No
  Sender: FDA-Public Use
  Company Number: None

PATIENT
  Sex: Female
  Weight: 55.9 kg

DRUGS (3)
  1. CISPLATIN [Suspect]
     Dosage: 115 MG
  2. ERBITUX [Suspect]
     Dosage: 1158 MG
  3. FLUOROURACIL [Suspect]
     Dosage: 6120 MG

REACTIONS (1)
  - NEUTROPHIL COUNT DECREASED [None]
